FAERS Safety Report 7785672-6 (Version None)
Quarter: 2011Q3

REPORT INFORMATION
  Report Type: 
  Country: None (occurrence: None)
  Receive Date: 20110929
  Receipt Date: 20110929
  Transmission Date: 20111222
  Serious: Yes (Life-Threatening, Hospitalization)
  Sender: FDA-Public Use
  Company Number: None

PATIENT
  Age: 48 Year
  Sex: Female
  Weight: 59.8 kg

DRUGS (1)
  1. KARIVA [Suspect]
     Indication: MOOD SWINGS
     Route: 048

REACTIONS (2)
  - PULMONARY INFARCTION [None]
  - PULMONARY EMBOLISM [None]
